FAERS Safety Report 13281718 (Version 2)
Quarter: 2017Q1

REPORT INFORMATION
  Report Type: Spontaneous
  Country: US (occurrence: US)
  Receive Date: 20170301
  Receipt Date: 20170307
  Transmission Date: 20170428
  Serious: No
  Sender: FDA-Public Use
  Company Number: US-PFIZER INC-2017077263

PATIENT
  Age: 54 Year
  Sex: Female
  Weight: 80 kg

DRUGS (17)
  1. LIDOCAINE/PRILOCAINE [Concomitant]
     Dosage: UNK [LIDOCAINE 2.5 %]/ [PRILOCAINE 2.5%] (1 TOPICAL APPLICATION TOPICAL )
     Route: 061
     Dates: start: 20130117
  2. VITAMIN D3 [Concomitant]
     Active Substance: CHOLECALCIFEROL
     Dosage: UNK (SOLID)
     Route: 048
  3. DILTIAZEM. [Concomitant]
     Active Substance: DILTIAZEM
     Dosage: UNK
     Route: 048
  4. LORAZEPAM. [Concomitant]
     Active Substance: LORAZEPAM
     Indication: SLEEP DISORDER
     Dosage: 1 MG, 1X/DAY (BED TIME)
     Route: 048
  5. MEDROL [Concomitant]
     Active Substance: METHYLPREDNISOLONE
     Dosage: 4 MG, UNK (AS DIRECTED) (FOR 2 DAYS)
     Route: 048
  6. IBRANCE [Suspect]
     Active Substance: PALBOCICLIB
     Indication: BREAST CANCER
     Dosage: 125 MG, CYCLIC (1 DAILY 3 WEEKS 1 WEEK OFF)
     Route: 048
     Dates: start: 201701
  7. ZOFRAN [Concomitant]
     Active Substance: ONDANSETRON HYDROCHLORIDE
     Indication: NAUSEA
     Dosage: 8 MG, AS NEEDED (Q8H PRN )
     Route: 048
     Dates: start: 20130117
  8. FASLODEX [Concomitant]
     Active Substance: FULVESTRANT
     Indication: METASTASES TO BONE
     Dosage: UNK (CYCLE 1 DAY 15)
     Dates: start: 201701
  9. FASLODEX [Concomitant]
     Active Substance: FULVESTRANT
     Indication: METASTASES TO LIVER
  10. LORTAB [Concomitant]
     Active Substance: ACETAMINOPHEN\HYDROCODONE BITARTRATE
     Indication: PAIN
     Dosage: 1 DF, AS NEEDED [HYDROCODONE-10MG]/ [PARACETAMOL-325MG] (Q6H )
     Route: 048
     Dates: start: 20130325
  11. MEDROL [Concomitant]
     Active Substance: METHYLPREDNISOLONE
     Dosage: 16 MG, UNK (AS DIRECTED) (16 MG FOR 2 DAYS)
     Route: 048
  12. MEDROL [Concomitant]
     Active Substance: METHYLPREDNISOLONE
     Dosage: 12 MG, UNK (AS DIRECTED) (FOR 2 DAYS)
     Route: 048
  13. MEDROL [Concomitant]
     Active Substance: METHYLPREDNISOLONE
     Dosage: 8 MG, UNK (AS DIRECTED) (FOR 2 DAYS)
     Route: 048
  14. MILK THISTLE [Concomitant]
     Active Substance: MILK THISTLE
     Dosage: UNK (SOLID)
     Route: 048
  15. PROMETHAZINE HCL [Concomitant]
     Active Substance: PROMETHAZINE HYDROCHLORIDE
     Indication: NAUSEA
     Dosage: 25 MG, AS NEEDED (Q6H)
     Route: 048
     Dates: start: 20130117
  16. CELEXA [Concomitant]
     Active Substance: CITALOPRAM HYDROBROMIDE
     Dosage: 10 MG, DAILY
     Route: 048
     Dates: start: 20070427
  17. MEDROL [Concomitant]
     Active Substance: METHYLPREDNISOLONE
     Dosage: 20 MG, UNK (AS DIRECTED) (FOR 2 DAYS)
     Route: 048

REACTIONS (11)
  - Eczema [Recovered/Resolved]
  - Obesity [Unknown]
  - Diarrhoea [Recovering/Resolving]
  - Depression [Unknown]
  - Appetite disorder [Unknown]
  - Full blood count decreased [Unknown]
  - Neuropathy peripheral [Not Recovered/Not Resolved]
  - Oedema [Unknown]
  - Erythema [Recovered/Resolved]
  - Dry skin [Recovered/Resolved]
  - Anxiety [Unknown]
